FAERS Safety Report 11881796 (Version 3)
Quarter: 2016Q2

REPORT INFORMATION
  Report Type: Other
  Country: IT (occurrence: IT)
  Receive Date: 20151231
  Receipt Date: 20160419
  Transmission Date: 20160815
  Serious: Yes (Life-Threatening)
  Sender: FDA-Public Use
  Company Number: IT-NOVEN PHARMACEUTICALS, INC.-IT2015001374

PATIENT

DRUGS (4)
  1. PAROXETINE. [Suspect]
     Active Substance: PAROXETINE
     Indication: DRUG ABUSE
     Dosage: UNK, UNKNOWN
     Route: 065
  2. METHADONE HYDROCHLORIDE. [Suspect]
     Active Substance: METHADONE HYDROCHLORIDE
     Indication: DRUG ABUSE
     Dosage: UNK, UNKNOWN
     Route: 065
  3. DEPAKIN [Suspect]
     Active Substance: VALPROATE SODIUM
     Indication: DRUG ABUSE
     Dosage: UNK, UNKNOWN
     Route: 065
  4. COCAINE [Concomitant]
     Active Substance: COCAINE

REACTIONS (2)
  - Drug abuse [Unknown]
  - Sopor [Unknown]

NARRATIVE: CASE EVENT DATE: 20151128
